FAERS Safety Report 7688818-3 (Version None)
Quarter: 2011Q3

REPORT INFORMATION
  Report Type: 
  Country: None (occurrence: None)
  Receive Date: 20110817
  Receipt Date: 20110808
  Transmission Date: 20111222
  Serious: Yes (Other)
  Sender: FDA-Public Use
  Company Number: JP-ASTRAZENECA-2011SE48003

PATIENT
  Age: 26 Year
  Sex: Male
  Weight: 75 kg

DRUGS (3)
  1. OTHER ANTIBIOTIC PREPARATIONS(INCLUDING MIXED ANTIBIOTIC [Suspect]
  2. DIPRIVAN [Suspect]
     Indication: INDUCTION OF ANAESTHESIA
     Route: 042
  3. ROCURONIUM BROMIDE [Suspect]
     Indication: HYPOTONIA
     Route: 042

REACTIONS (1)
  - ANAPHYLACTIC SHOCK [None]
